FAERS Safety Report 5714029-4 (Version None)
Quarter: 2008Q2

REPORT INFORMATION
  Report Type: 
  Country: None (occurrence: None)
  Receive Date: 20080422
  Receipt Date: 20080422
  Transmission Date: 20081010
  Serious: Yes (Hospitalization)
  Sender: FDA-Public Use
  Company Number: None

PATIENT
  Sex: Male
  Weight: 95 kg

DRUGS (3)
  1. ELOXATIN [Suspect]
     Dosage: 23.4 MG
  2. BEVACIZUMAB (RHUMAB VEGF) [Suspect]
     Dosage: 475 MG
  3. CAMPTOSAR [Suspect]
     Dosage: 385 MG

REACTIONS (4)
  - EAR PRURITUS [None]
  - HEART RATE INCREASED [None]
  - HYPERSENSITIVITY [None]
  - RESPIRATORY RATE INCREASED [None]
